FAERS Safety Report 11119419 (Version 1)
Quarter: 2015Q2

REPORT INFORMATION
  Report Type: Spontaneous
  Country: CZ (occurrence: CZ)
  Receive Date: 20150518
  Receipt Date: 20150518
  Transmission Date: 20150821
  Serious: Yes (Other)
  Sender: FDA-Public Use
  Company Number: CZ-ACTAVIS-2015-10161

PATIENT
  Age: 69 Year
  Sex: Male

DRUGS (10)
  1. TIAPRIDE (UNKNOWN) [Suspect]
     Active Substance: TIAPRIDE
     Indication: PSYCHOTIC BEHAVIOUR
     Dosage: 100-200 MG DAILY
     Route: 065
  2. RIVASTIGMINE (UNKNOWN) [Suspect]
     Active Substance: RIVASTIGMINE
     Indication: PARKINSON^S DISEASE
     Dosage: UNK
     Route: 065
  3. QUETIAPINE (UNKNOWN) [Suspect]
     Active Substance: QUETIAPINE
     Indication: PARANOIA
     Dosage: 25-75 DAILY
     Route: 065
     Dates: start: 2009
  4. OLANZAPINE (UNKNOWN) [Suspect]
     Active Substance: OLANZAPINE
     Indication: PSYCHOTIC BEHAVIOUR
     Dosage: 2.5-5 MG DAILY
     Route: 065
  5. LEVODOPA [Suspect]
     Active Substance: LEVODOPA
     Indication: PARKINSON^S DISEASE
     Dosage: 750 MG, DAILY
     Route: 065
  6. ALPRAZOLAM. [Concomitant]
     Active Substance: ALPRAZOLAM
     Indication: ANXIETY
     Dosage: UNK
     Route: 065
  7. QUETIAPINE (UNKNOWN) [Suspect]
     Active Substance: QUETIAPINE
     Dosage: 25 MG, DAILY
     Route: 065
     Dates: start: 2009
  8. SELEGILINE (UNKNOWN) [Suspect]
     Active Substance: SELEGILINE
     Indication: PARKINSON^S DISEASE
     Dosage: 10 MG, DAILY
     Route: 065
  9. LEVODOPA [Suspect]
     Active Substance: LEVODOPA
     Dosage: 150 MG, DAILY
     Route: 065
  10. ESCITALOPRAM [Concomitant]
     Active Substance: ESCITALOPRAM OXALATE
     Indication: ANXIETY
     Dosage: 10 MG, DAILY
     Route: 065

REACTIONS (1)
  - Parkinson^s disease [Not Recovered/Not Resolved]
